FAERS Safety Report 8723505 (Version 6)
Quarter: 2013Q1

REPORT INFORMATION
  Report Type: Report from Study
  Country: GB (occurrence: GB)
  Receive Date: 20120814
  Receipt Date: 20130221
  Transmission Date: 20140127
  Serious: Yes (Hospitalization)
  Sender: FDA-Public Use
  Company Number: GB-BAXTER-2012BAX013858

PATIENT
  Age: 6 Year
  Sex: Male
  Weight: 21.8 kg

DRUGS (35)
  1. UROMITEXAN [Suspect]
     Indication: NEOPLASM MALIGNANT
     Route: 042
     Dates: start: 20120704, end: 20120704
  2. UROMITEXAN [Suspect]
     Route: 042
     Dates: start: 20120705, end: 20120705
  3. UROMITEXAN [Suspect]
     Route: 042
     Dates: start: 20120706, end: 20120706
  4. UROMITEXAN [Suspect]
     Route: 042
     Dates: start: 20120815
  5. UROMITEXAN [Suspect]
     Route: 042
     Dates: start: 20120816
  6. UROMITEXAN [Suspect]
     Route: 042
     Dates: start: 20120906
  7. UROMITEXAN [Suspect]
     Route: 042
  8. UROMITEXAN [Suspect]
     Route: 042
  9. UROMITEXAN [Suspect]
     Route: 042
     Dates: start: 20130105
  10. IFOSFAMIDE [Suspect]
     Indication: NEOPLASM MALIGNANT
     Route: 042
     Dates: start: 20120704, end: 20120704
  11. IFOSFAMIDE [Suspect]
     Route: 042
     Dates: start: 20120705, end: 20120705
  12. IFOSFAMIDE [Suspect]
     Route: 042
     Dates: start: 20120816
  13. IFOSFAMIDE [Suspect]
     Route: 042
     Dates: start: 20120906
  14. IFOSFAMIDE [Suspect]
     Route: 042
  15. IFOSFAMIDE [Suspect]
     Route: 042
     Dates: start: 20130105
  16. ACTINOMYCIN D [Suspect]
     Indication: NEOPLASM MALIGNANT
     Route: 042
     Dates: start: 20120704, end: 20120704
  17. ACTINOMYCIN D [Suspect]
     Route: 042
     Dates: start: 20120815
  18. ACTINOMYCIN D [Suspect]
     Route: 042
     Dates: start: 20120905
  19. VINCRISTINE [Suspect]
     Indication: NEOPLASM MALIGNANT
     Route: 042
     Dates: start: 20120704, end: 20120704
  20. VINCRISTINE [Suspect]
     Route: 042
     Dates: start: 20120711, end: 20120711
  21. VINCRISTINE [Suspect]
     Route: 042
     Dates: start: 20120815
  22. VINCRISTINE [Suspect]
     Route: 042
     Dates: start: 20120905
  23. VINCRISTINE [Suspect]
     Route: 042
  24. VINCRISTINE [Suspect]
     Route: 042
     Dates: start: 20130104
  25. DOXORUBICIN [Suspect]
     Indication: NEOPLASM MALIGNANT
     Route: 042
     Dates: start: 20120704, end: 20120704
  26. DOXORUBICIN [Suspect]
     Route: 042
     Dates: start: 20120705, end: 20120705
  27. DOXORUBICIN [Suspect]
     Route: 042
     Dates: start: 20120816
  28. DOXORUBICIN [Suspect]
     Route: 042
     Dates: start: 20120906
  29. DEXAMETHASONE [Concomitant]
     Indication: PRODUCT USED FOR UNKNOWN INDICATION
     Route: 065
     Dates: start: 20120707, end: 20120707
  30. DEXAMETHASONE [Concomitant]
     Route: 065
     Dates: start: 20120708, end: 20120708
  31. CO-TRIMOXAZOLE [Concomitant]
     Indication: PRODUCT USED FOR UNKNOWN INDICATION
     Route: 065
     Dates: start: 20120707
  32. CO-TRIMOXAZOLE [Concomitant]
     Route: 065
  33. MOVICOL [Concomitant]
     Indication: PRODUCT USED FOR UNKNOWN INDICATION
     Dosage: 2 SACHETS
     Route: 065
     Dates: start: 20120701, end: 20120709
  34. DOCUSATE SODIUM [Concomitant]
     Indication: PRODUCT USED FOR UNKNOWN INDICATION
     Route: 065
     Dates: start: 20120703
  35. ONDANSETRON [Concomitant]
     Indication: PRODUCT USED FOR UNKNOWN INDICATION
     Dates: start: 20120714, end: 20120720

REACTIONS (2)
  - Vomiting [Recovered/Resolved]
  - Febrile neutropenia [Recovered/Resolved]
